FAERS Safety Report 6349510-0 (Version None)
Quarter: 2009Q3

REPORT INFORMATION
  Report Type: 
  Country: None (occurrence: None)
  Receive Date: 20090911
  Receipt Date: 20090828
  Transmission Date: 20100115
  Serious: Yes (Hospitalization)
  Sender: FDA-Public Use
  Company Number: US-ROCHE-653481

PATIENT
  Age: 49 Year
  Sex: Female

DRUGS (9)
  1. COPEGUS [Suspect]
     Indication: HEPATITIS C
     Dosage: POSSIBLE OVERDOSE; 4 TABLETS IN AM AND 6 IN PM
     Route: 048
     Dates: start: 20090815
  2. COPEGUS [Suspect]
     Dosage: POSSIBLE OVERDOSE; 4 TABLETS IN AM AND 6 IN PM
     Route: 048
     Dates: start: 20090824, end: 20090826
  3. COPEGUS [Suspect]
     Dosage: DOSE; 2 TABLETS IN AM AND 3 IN PM
     Route: 048
  4. PEGASYS [Suspect]
     Indication: HEPATITIS C
     Route: 065
  5. HYDROCHLOROTHIAZIDE [Concomitant]
  6. PROCARDIA [Concomitant]
  7. ANAPRIL [Concomitant]
  8. NEXIUM [Concomitant]
  9. ATENOLOL [Concomitant]

REACTIONS (2)
  - OVERDOSE [None]
  - TRANSFUSION [None]
